FAERS Safety Report 6606079 (Version 14)
Quarter: 2013Q3

REPORT INFORMATION
  Report Type: Spontaneous
  Country: US (occurrence: US)
  Receive Date: 20080404
  Receipt Date: 20130829
  Transmission Date: 20140515
  Serious: Yes (Other)
  Sender: FDA-Public Use
  Company Number: PHEH2008US03117

PATIENT
  Sex: Female

DRUGS (20)
  1. AREDIA [Suspect]
     Indication: METASTASES TO BONE
     Route: 042
  2. ZOMETA [Suspect]
     Indication: BREAST CANCER METASTATIC
     Route: 042
     Dates: start: 20060227
  3. ZOMETA [Suspect]
     Dosage: 4 MG, QMO
     Route: 042
     Dates: start: 20090401
  4. FEMARA [Concomitant]
  5. PAROXETINE [Concomitant]
  6. ZETIA [Concomitant]
  7. HYDROCHLOROTHIAZIDE [Concomitant]
  8. LISINOPRIL [Concomitant]
  9. ASPIRIN [Concomitant]
  10. CALTRATE +D [Concomitant]
  11. AMLODIPINE BESILATE [Concomitant]
  12. VICODIN [Concomitant]
  13. PRAVASTATIN SODIUM [Concomitant]
  14. XANAX [Concomitant]
  15. FASLODEX [Concomitant]
  16. ARIMIDEX [Concomitant]
     Dates: start: 201010
  17. XELODA [Concomitant]
     Dosage: 500 MG
  18. AROMASIN [Concomitant]
  19. VYTORIN [Concomitant]
  20. NAVELBINE [Concomitant]

REACTIONS (77)
  - Osteonecrosis of jaw [Unknown]
  - Pain [Unknown]
  - Infection [Unknown]
  - Scar [Unknown]
  - Injury [Unknown]
  - Emotional distress [Unknown]
  - Pain in jaw [Unknown]
  - Anxiety [Unknown]
  - Physical disability [Unknown]
  - Oral disorder [Unknown]
  - Exposed bone in jaw [Unknown]
  - Hyperlipidaemia [Unknown]
  - Hypertension [Unknown]
  - Neoplasm progression [Unknown]
  - Hepatic lesion [Unknown]
  - Malignant neoplasm progression [Unknown]
  - Bone lesion [Unknown]
  - Metastases to liver [Unknown]
  - Metastases to bone [Unknown]
  - Pulmonary mass [Unknown]
  - Cardiac murmur [Unknown]
  - Hepatic steatosis [Unknown]
  - Spinal osteoarthritis [Unknown]
  - Back pain [Unknown]
  - Fall [Unknown]
  - Blood cholesterol increased [Unknown]
  - Rib fracture [Unknown]
  - Nephrolithiasis [Unknown]
  - Haemorrhoids [Unknown]
  - Osteoporosis [Unknown]
  - Angioedema [Unknown]
  - Neuropathy peripheral [Unknown]
  - Osteosclerosis [Unknown]
  - Foot fracture [Unknown]
  - Arthritis [Unknown]
  - Osteopenia [Unknown]
  - Pleural fibrosis [Unknown]
  - Atelectasis [Unknown]
  - Thyroid neoplasm [Unknown]
  - Exostosis [Unknown]
  - Endometrial disorder [Unknown]
  - Postmenopausal haemorrhage [Unknown]
  - Intervertebral disc space narrowing [Unknown]
  - Erythema [Unknown]
  - Constipation [Unknown]
  - Swollen tongue [Recovering/Resolving]
  - Pain in extremity [Unknown]
  - Diarrhoea [Unknown]
  - Aortic arteriosclerosis [Unknown]
  - Atrial fibrillation [Unknown]
  - Menorrhagia [Unknown]
  - Dyspepsia [Unknown]
  - Dysphagia [Unknown]
  - Gastrooesophageal reflux disease [Unknown]
  - Depression [Unknown]
  - Varicose vein [Unknown]
  - Arthralgia [Unknown]
  - Uterine atrophy [Unknown]
  - Ureteral cyst [Unknown]
  - Radiculopathy [Unknown]
  - Spinal column stenosis [Unknown]
  - Calculus urinary [Unknown]
  - Gait disturbance [Unknown]
  - Mitral valve incompetence [Unknown]
  - Pericardial effusion [Unknown]
  - Hiatus hernia [Unknown]
  - Venous aneurysm [Unknown]
  - Oesophageal stenosis [Unknown]
  - Ecchymosis [Unknown]
  - Presbyacusis [Unknown]
  - Oedema peripheral [Unknown]
  - Iron deficiency anaemia [Unknown]
  - Hypokalaemia [Unknown]
  - Acute sinusitis [Unknown]
  - Metastases to spine [Unknown]
  - Skin lesion [Unknown]
  - Thrombocytopenia [Unknown]
